FAERS Safety Report 4656467-7 (Version None)
Quarter: 2005Q2

REPORT INFORMATION
  Report Type: 
  Country: None (occurrence: None)
  Receive Date: 20050505
  Receipt Date: 20050421
  Transmission Date: 20051028
  Serious: No
  Sender: FDA-Public Use
  Company Number: FR-2005-005994

PATIENT
  Age: 43 Year
  Sex: Female

DRUGS (2)
  1. MIRENA [Suspect]
     Dosage: 20  ?G, CONT, INTRA-UTERINE
     Route: 015
     Dates: start: 20010101, end: 20050301
  2. MIRENA [Suspect]
     Dosage: 20  ?G, CONT, INTRA-UTERINE
     Route: 015
     Dates: start: 20050301

REACTIONS (3)
  - BREAST CANCER FEMALE [None]
  - OEDEMA PERIPHERAL [None]
  - PAIN IN EXTREMITY [None]
